FAERS Safety Report 19462738 (Version 1)
Quarter: 2021Q2

REPORT INFORMATION
  Report Type: Spontaneous
  Country: PL (occurrence: PL)
  Receive Date: 20210625
  Receipt Date: 20210625
  Transmission Date: 20210717
  Serious: Yes (Hospitalization, Other)
  Sender: FDA-Public Use
  Company Number: PL-JNJFOC-20210652245

PATIENT
  Age: 69 Year
  Sex: Male

DRUGS (1)
  1. ILOPROST. [Suspect]
     Active Substance: ILOPROST
     Indication: PULMONARY ARTERIAL HYPERTENSION
     Dosage: 6X DAILY 10?20 UG
     Route: 055
     Dates: start: 201707

REACTIONS (9)
  - Right ventricular failure [Unknown]
  - Gastric disorder [Recovered/Resolved]
  - Diarrhoea [Unknown]
  - Microcytic anaemia [Recovered/Resolved]
  - Fluid overload [Unknown]
  - Oedema peripheral [Recovered/Resolved]
  - Cardiac failure [Unknown]
  - Oesophageal disorder [Recovered/Resolved]
  - Ischaemic cerebral infarction [Unknown]

NARRATIVE: CASE EVENT DATE: 202001
